FAERS Safety Report 10806488 (Version 1)
Quarter: 2015Q1

REPORT INFORMATION
  Report Type: Report from Study
  Country: US (occurrence: US)
  Receive Date: 20150217
  Receipt Date: 20150217
  Transmission Date: 20150721
  Serious: No
  Sender: FDA-Public Use
  Company Number: US-ABBVIE-14K-163-1263283-00

PATIENT
  Age: 46 Year
  Sex: Male

DRUGS (5)
  1. VIACTIV CALCIUM PLUS VITAMIN D + K [Concomitant]
     Indication: SUPPLEMENTATION THERAPY
  2. HUMIRA [Suspect]
     Active Substance: ADALIMUMAB
     Indication: CROHN^S DISEASE
     Dates: start: 20140519, end: 20140519
  3. HUMIRA [Suspect]
     Active Substance: ADALIMUMAB
     Dates: start: 20140602, end: 20140602
  4. HUMIRA [Suspect]
     Active Substance: ADALIMUMAB
     Dates: start: 20140616
  5. VITAMIN B12 [Concomitant]
     Active Substance: CYANOCOBALAMIN
     Indication: PRODUCT USED FOR UNKNOWN INDICATION

REACTIONS (2)
  - Muscular weakness [Not Recovered/Not Resolved]
  - Exostosis [Not Recovered/Not Resolved]

NARRATIVE: CASE EVENT DATE: 2014
